FAERS Safety Report 12944232 (Version 6)
Quarter: 2017Q1

REPORT INFORMATION
  Report Type: Spontaneous
  Country: TH (occurrence: TH)
  Receive Date: 20161115
  Receipt Date: 20170221
  Transmission Date: 20170428
  Serious: Yes (Death, Hospitalization, Other)
  Sender: FDA-Public Use
  Company Number: TH-PFIZER INC-2016519714

PATIENT
  Age: 74 Year
  Sex: Male

DRUGS (4)
  1. CARDURA XL [Suspect]
     Active Substance: DOXAZOSIN MESYLATE
     Indication: BENIGN PROSTATIC HYPERPLASIA
     Dosage: 4 MG, 1X/DAY
     Route: 048
  2. SULFIN [Concomitant]
     Indication: GOUT
     Dosage: UNK
     Dates: start: 201608
  3. WARFARIN [Concomitant]
     Active Substance: WARFARIN
     Indication: ATRIAL FIBRILLATION
     Dosage: 3 MG, 1X/DAY
     Route: 048
  4. ALLOPURINOL. [Concomitant]
     Active Substance: ALLOPURINOL

REACTIONS (5)
  - Penile vein thrombosis [Recovered/Resolved]
  - Cerebral ischaemia [Unknown]
  - Death [Fatal]
  - Priapism [Recovered/Resolved]
  - Pulmonary oedema [Unknown]
